FAERS Safety Report 5827311-7 (Version None)
Quarter: 2008Q3

REPORT INFORMATION
  Report Type: 
  Country: None (occurrence: None)
  Receive Date: 20080724
  Receipt Date: 20080710
  Transmission Date: 20090109
  Serious: Yes (Hospitalization)
  Sender: FDA-Public Use
  Company Number: DSJ-2008-08669

PATIENT
  Age: 83 Year
  Sex: Female

DRUGS (12)
  1. OLMESARTAN MEDOXOMIL [Suspect]
     Indication: HYPERTENSION
     Dosage: 20 MG (20 MG, 1 IN 1 D), PER ORAL
     Route: 048
     Dates: end: 20080101
  2. ARICEPT [Suspect]
     Indication: DEMENTIA ALZHEIMER'S TYPE
     Dosage: 8 MG (8 MG , 1 IN 1 D), PER ORAL
     Route: 048
     Dates: start: 20080310, end: 20080317
  3. NORVASC [Suspect]
     Indication: HYPERTENSION
     Dosage: 2.5 MG (2.5 MG, 1 IN 1 D), PER ORAL
     Route: 048
     Dates: end: 20080101
  4. TEGRETOL [Suspect]
     Indication: POST HERPETIC NEURALGIA
     Dosage: 400 MG (400 MG, 1 IN 1 D), PER ORAL
     Route: 048
     Dates: start: 20070815, end: 20080318
  5. ITRIZOLE (ITRACONAZQLE) [Suspect]
     Indication: ONYCHOMYCOSIS
     Dosage: 50 MG (50 MG,1 IN 1 D), PER ORAL
     Route: 048
     Dates: start: 20080310, end: 20080317
  6. LOBU     (LOXOPROFEN SODIUM) [Concomitant]
  7. GLUCOBAY  (ACARBOSE)(ACARBOSE) [Concomitant]
  8. FAMOTIDINE [Suspect]
  9. RIZE (CLOTIAZEPAM) [Concomitant]
  10. MUCOSTA (REBAMIPIDE)(REBAMIPIDE) [Concomitant]
  11. GLYCORAN (METFORMIN HYDROCHLORIDE) [Concomitant]
  12. DEPAS (ETIZOLAM) [Concomitant]

REACTIONS (5)
  - DRUG ERUPTION [None]
  - ERYTHEMA MULTIFORME [None]
  - GENITAL EROSION [None]
  - INFECTION [None]
  - STOMATITIS [None]
